FAERS Safety Report 25435486 (Version 1)
Quarter: 2025Q2

REPORT INFORMATION
  Report Type: Spontaneous
  Country: DE (occurrence: DE)
  Receive Date: 20250613
  Receipt Date: 20250613
  Transmission Date: 20250717
  Serious: Yes (Hospitalization, Other)
  Sender: MYLAN
  Company Number: None

PATIENT
  Age: 68 Year
  Sex: Male

DRUGS (36)
  1. SERTRALINE [Suspect]
     Active Substance: SERTRALINE HYDROCHLORIDE
     Indication: Product used for unknown indication
     Dosage: 150 MILLIGRAM, QD
     Dates: start: 20241202, end: 20250113
  2. SERTRALINE [Suspect]
     Active Substance: SERTRALINE HYDROCHLORIDE
     Dosage: 150 MILLIGRAM, QD
     Route: 048
     Dates: start: 20241202, end: 20250113
  3. SERTRALINE [Suspect]
     Active Substance: SERTRALINE HYDROCHLORIDE
     Dosage: 150 MILLIGRAM, QD
     Route: 048
     Dates: start: 20241202, end: 20250113
  4. SERTRALINE [Suspect]
     Active Substance: SERTRALINE HYDROCHLORIDE
     Dosage: 150 MILLIGRAM, QD
     Dates: start: 20241202, end: 20250113
  5. OLANZAPINE [Suspect]
     Active Substance: OLANZAPINE
     Indication: Product used for unknown indication
     Dosage: 5 MILLIGRAM, QD
     Dates: start: 20250107, end: 20250108
  6. OLANZAPINE [Suspect]
     Active Substance: OLANZAPINE
     Dosage: 5 MILLIGRAM, QD
     Dates: start: 20250107, end: 20250108
  7. OLANZAPINE [Suspect]
     Active Substance: OLANZAPINE
     Dosage: 5 MILLIGRAM, QD
     Route: 048
     Dates: start: 20250107, end: 20250108
  8. OLANZAPINE [Suspect]
     Active Substance: OLANZAPINE
     Dosage: 5 MILLIGRAM, QD
     Route: 048
     Dates: start: 20250107, end: 20250108
  9. OLANZAPINE [Suspect]
     Active Substance: OLANZAPINE
     Dosage: 10 MILLIGRAM, QD
     Dates: start: 20250109
  10. OLANZAPINE [Suspect]
     Active Substance: OLANZAPINE
     Dosage: 10 MILLIGRAM, QD
     Dates: start: 20250109
  11. OLANZAPINE [Suspect]
     Active Substance: OLANZAPINE
     Dosage: 10 MILLIGRAM, QD
     Route: 048
     Dates: start: 20250109
  12. OLANZAPINE [Suspect]
     Active Substance: OLANZAPINE
     Dosage: 10 MILLIGRAM, QD
     Route: 048
     Dates: start: 20250109
  13. OLANZAPINE [Suspect]
     Active Substance: OLANZAPINE
     Dosage: 15 MILLIGRAM, QD
     Dates: start: 20250110, end: 20250112
  14. OLANZAPINE [Suspect]
     Active Substance: OLANZAPINE
     Dosage: 15 MILLIGRAM, QD
     Route: 048
     Dates: start: 20250110, end: 20250112
  15. OLANZAPINE [Suspect]
     Active Substance: OLANZAPINE
     Dosage: 15 MILLIGRAM, QD
     Dates: start: 20250110, end: 20250112
  16. OLANZAPINE [Suspect]
     Active Substance: OLANZAPINE
     Dosage: 15 MILLIGRAM, QD
     Route: 048
     Dates: start: 20250110, end: 20250112
  17. ELIQUIS [Concomitant]
     Active Substance: APIXABAN
     Indication: Anticoagulant therapy
     Dosage: 5 MILLIGRAM, QD (SINCE ABOUT 1 YEAR - B.A.W.[POSSIBLY: UNTIL FURTHER NOTICE])
  18. ELIQUIS [Concomitant]
     Active Substance: APIXABAN
     Dosage: 5 MILLIGRAM, QD (SINCE ABOUT 1 YEAR - B.A.W.[POSSIBLY: UNTIL FURTHER NOTICE])
     Route: 048
  19. ELIQUIS [Concomitant]
     Active Substance: APIXABAN
     Dosage: 5 MILLIGRAM, QD (SINCE ABOUT 1 YEAR - B.A.W.[POSSIBLY: UNTIL FURTHER NOTICE])
     Route: 048
  20. ELIQUIS [Concomitant]
     Active Substance: APIXABAN
     Dosage: 5 MILLIGRAM, QD (SINCE ABOUT 1 YEAR - B.A.W.[POSSIBLY: UNTIL FURTHER NOTICE])
  21. PANTOPRAZOLE [Concomitant]
     Active Substance: PANTOPRAZOLE
     Indication: Gastrointestinal disorder therapy
     Dosage: 40 MILLIGRAM, QD (SINCE ABOUT 1 YEAR - B.A.W.[POSSIBLY: UNTIL FURTHER NOTICE])
  22. PANTOPRAZOLE [Concomitant]
     Active Substance: PANTOPRAZOLE
     Dosage: 40 MILLIGRAM, QD (SINCE ABOUT 1 YEAR - B.A.W.[POSSIBLY: UNTIL FURTHER NOTICE])
     Route: 048
  23. PANTOPRAZOLE [Concomitant]
     Active Substance: PANTOPRAZOLE
     Dosage: 40 MILLIGRAM, QD (SINCE ABOUT 1 YEAR - B.A.W.[POSSIBLY: UNTIL FURTHER NOTICE])
     Route: 048
  24. PANTOPRAZOLE [Concomitant]
     Active Substance: PANTOPRAZOLE
     Dosage: 40 MILLIGRAM, QD (SINCE ABOUT 1 YEAR - B.A.W.[POSSIBLY: UNTIL FURTHER NOTICE])
  25. INDAPAMIDE [Concomitant]
     Active Substance: INDAPAMIDE
     Indication: Drug therapy
     Dosage: 1.5 MILLIGRAM, QD (SINCE ABOUT 1 YEAR - B.A.W.[POSSIBLY: UNTIL FURTHER NOTICE])
  26. INDAPAMIDE [Concomitant]
     Active Substance: INDAPAMIDE
     Dosage: 1.5 MILLIGRAM, QD (SINCE ABOUT 1 YEAR - B.A.W.[POSSIBLY: UNTIL FURTHER NOTICE])
     Route: 048
  27. INDAPAMIDE [Concomitant]
     Active Substance: INDAPAMIDE
     Dosage: 1.5 MILLIGRAM, QD (SINCE ABOUT 1 YEAR - B.A.W.[POSSIBLY: UNTIL FURTHER NOTICE])
     Route: 048
  28. INDAPAMIDE [Concomitant]
     Active Substance: INDAPAMIDE
     Dosage: 1.5 MILLIGRAM, QD (SINCE ABOUT 1 YEAR - B.A.W.[POSSIBLY: UNTIL FURTHER NOTICE])
  29. BISOPROLOL FUMARATE [Concomitant]
     Active Substance: BISOPROLOL FUMARATE
     Indication: Drug therapy
     Dosage: 5 MILLIGRAM, QD (SINCE ABOUT 1 YEAR - B.A.W.[POSSIBLY: UNTIL FURTHER NOTICE])
  30. BISOPROLOL FUMARATE [Concomitant]
     Active Substance: BISOPROLOL FUMARATE
     Dosage: 5 MILLIGRAM, QD (SINCE ABOUT 1 YEAR - B.A.W.[POSSIBLY: UNTIL FURTHER NOTICE])
     Route: 048
  31. BISOPROLOL FUMARATE [Concomitant]
     Active Substance: BISOPROLOL FUMARATE
     Dosage: 5 MILLIGRAM, QD (SINCE ABOUT 1 YEAR - B.A.W.[POSSIBLY: UNTIL FURTHER NOTICE])
     Route: 048
  32. BISOPROLOL FUMARATE [Concomitant]
     Active Substance: BISOPROLOL FUMARATE
     Dosage: 5 MILLIGRAM, QD (SINCE ABOUT 1 YEAR - B.A.W.[POSSIBLY: UNTIL FURTHER NOTICE])
  33. ALLOPURINOL [Concomitant]
     Active Substance: ALLOPURINOL
     Indication: Gout
     Dosage: 100 MILLIGRAM, QD (SINCE ABOUT 1 YEAR - B.A.W.[POSSIBLY: UNTIL FURTHER NOTICE])
  34. ALLOPURINOL [Concomitant]
     Active Substance: ALLOPURINOL
     Dosage: 100 MILLIGRAM, QD (SINCE ABOUT 1 YEAR - B.A.W.[POSSIBLY: UNTIL FURTHER NOTICE])
     Route: 048
  35. ALLOPURINOL [Concomitant]
     Active Substance: ALLOPURINOL
     Dosage: 100 MILLIGRAM, QD (SINCE ABOUT 1 YEAR - B.A.W.[POSSIBLY: UNTIL FURTHER NOTICE])
     Route: 048
  36. ALLOPURINOL [Concomitant]
     Active Substance: ALLOPURINOL
     Dosage: 100 MILLIGRAM, QD (SINCE ABOUT 1 YEAR - B.A.W.[POSSIBLY: UNTIL FURTHER NOTICE])

REACTIONS (16)
  - Neuroleptic malignant syndrome [Recovered/Resolved]
  - Disorientation [Recovered/Resolved]
  - Hallucinations, mixed [Recovered/Resolved]
  - Agitation [Recovered/Resolved]
  - Cold sweat [Recovered/Resolved]
  - Pyrexia [Recovered/Resolved]
  - Apraxia [Recovered/Resolved]
  - Resting tremor [Recovered/Resolved]
  - Intention tremor [Recovered/Resolved]
  - Postural tremor [Recovered/Resolved]
  - Chills [Recovered/Resolved]
  - Dysarthria [Recovered/Resolved]
  - Blood creatine phosphokinase increased [Recovered/Resolved]
  - Hypernatraemia [Recovered/Resolved]
  - Hypokalaemia [Recovered/Resolved]
  - Serotonin syndrome [Unknown]

NARRATIVE: CASE EVENT DATE: 20250112
